FAERS Safety Report 7607949-7 (Version None)
Quarter: 2011Q3

REPORT INFORMATION
  Report Type: 
  Country: None (occurrence: None)
  Receive Date: 20110712
  Receipt Date: 20110712
  Transmission Date: 20111222
  Serious: Yes (Hospitalization)
  Sender: FDA-Public Use
  Company Number: None

PATIENT
  Age: 56 Year
  Sex: Male
  Weight: 81 kg

DRUGS (1)
  1. PIOGLITAZONE [Suspect]
     Indication: DIABETES MELLITUS
     Dosage: 45 MG EVERY DAY PO
     Route: 048
     Dates: start: 20100419, end: 20110526

REACTIONS (1)
  - CARDIAC FAILURE CONGESTIVE [None]
